FAERS Safety Report 19574078 (Version 1)
Quarter: 2021Q3

REPORT INFORMATION
  Report Type: Spontaneous
  Country: IN (occurrence: IN)
  Receive Date: 20210718
  Receipt Date: 20210718
  Transmission Date: 20211014
  Serious: Yes (Disabling, Other)
  Sender: FDA-Public Use
  Company Number: IN-MSNLABS-2021MSNLIT00243

PATIENT

DRUGS (1)
  1. DEFERASIROX FC TABLETS 360MG [Suspect]
     Active Substance: DEFERASIROX
     Indication: PRODUCT USED FOR UNKNOWN INDICATION
     Route: 065

REACTIONS (3)
  - Drug ineffective [Unknown]
  - Blindness [Not Recovered/Not Resolved]
  - Maculopathy [Not Recovered/Not Resolved]
